FAERS Safety Report 10694016 (Version 1)
Quarter: 2015Q1

REPORT INFORMATION
  Report Type: Spontaneous
  Country: US (occurrence: US)
  Receive Date: 20150106
  Receipt Date: 20150106
  Transmission Date: 20150721
  Serious: No
  Sender: FDA-Public Use
  Company Number: US-009507513-1501USA001089

PATIENT
  Sex: Male

DRUGS (1)
  1. LOTRIMIN [Suspect]
     Active Substance: CLOTRIMAZOLE
     Indication: SKIN ODOUR ABNORMAL
     Dosage: UNK, UNKNOWN
     Route: 061

REACTIONS (2)
  - Product use issue [Unknown]
  - Drug ineffective for unapproved indication [Unknown]
